FAERS Safety Report 8857765 (Version 1)
Quarter: 2012Q4

REPORT INFORMATION
  Report Type: 
  Country: US (occurrence: US)
  Receive Date: 20121024
  Receipt Date: 20121024
  Transmission Date: 20130627
  Serious: No
  Sender: FDA-Public Use
  Company Number: US-ASTRAZENECA-2012SE78607

PATIENT
  Age: 74 Year
  Sex: Female

DRUGS (4)
  1. SEROQUEL XR [Suspect]
     Dosage: SEROQUEL XR 400MG ONE TABLET BY MOUTH AT 530 TO 6PM EVERY EVENING
     Route: 048
  2. SEROQUEL XR [Suspect]
     Dosage: SEROQUEL XR 200MG ONE TABLET BY MOUTH AT 3PM, AND ONE TABLET BY MOUTH AT 530 TO 6PM EVERY EVENING.
     Route: 048
  3. SEROQUEL XR [Suspect]
     Route: 048
  4. PERCOCET [Concomitant]
     Indication: ANALGESIC THERAPY

REACTIONS (2)
  - Fall [Unknown]
  - Urine analysis abnormal [Unknown]
